FAERS Safety Report 17794258 (Version 2)
Quarter: 2024Q4

REPORT INFORMATION
  Report Type: Spontaneous
  Country: PL (occurrence: PL)
  Receive Date: 20200515
  Receipt Date: 20241022
  Transmission Date: 20250115
  Serious: Yes (Other)
  Sender: MYLAN
  Company Number: PL-SA-2020SA101123

PATIENT
  Age: 31 Year
  Sex: Female

DRUGS (3)
  1. MIANSERIN [Suspect]
     Active Substance: MIANSERIN
     Indication: Product used for unknown indication
     Dosage: 300 MG (30 X 10 MG), 30 DOSAGE FORM
     Route: 048
  2. ALPRAZOLAM [Suspect]
     Active Substance: ALPRAZOLAM
     Indication: Product used for unknown indication
     Dosage: 7.5 MG (30 X 0.25 MG), 30 DOSAGE FORM
     Route: 048
  3. DEXTROMETHORPHAN HYDROBROMIDE [Suspect]
     Active Substance: DEXTROMETHORPHAN HYDROBROMIDE
     Indication: Product used for unknown indication
     Dosage: 30 MILLIGRAM, 150 TOTAL
     Route: 048

REACTIONS (7)
  - Suicide attempt [Recovered/Resolved]
  - Toxicity to various agents [Recovered/Resolved]
  - Agitation [Recovered/Resolved]
  - Altered state of consciousness [Recovered/Resolved]
  - Drug abuse [Unknown]
  - Intentional overdose [Unknown]
  - Intentional product misuse [Unknown]

NARRATIVE: CASE EVENT DATE: 20200412
